FAERS Safety Report 7706332-3 (Version None)
Quarter: 2011Q3

REPORT INFORMATION
  Report Type: 
  Country: None (occurrence: None)
  Receive Date: 20110824
  Receipt Date: 20110816
  Transmission Date: 20111222
  Serious: Yes (Other)
  Sender: FDA-Public Use
  Company Number: DE-JNJFOC-20110807517

PATIENT
  Age: 67 Year
  Sex: Female

DRUGS (6)
  1. INFLIXIMAB, RECOMBINANT [Suspect]
     Indication: RHEUMATOID ARTHRITIS
     Route: 042
  2. METHOTREXATE [Concomitant]
  3. INFLIXIMAB, RECOMBINANT [Suspect]
     Route: 042
     Dates: start: 20040701
  4. METHOTREXATE [Concomitant]
  5. INFLIXIMAB, RECOMBINANT [Suspect]
     Route: 042
     Dates: end: 20100101
  6. METHOTREXATE [Concomitant]

REACTIONS (1)
  - BREAST CANCER [None]
